FAERS Safety Report 4664319-1 (Version None)
Quarter: 2005Q2

REPORT INFORMATION
  Report Type: 
  Country: None (occurrence: None)
  Receive Date: 20050518
  Receipt Date: 20050506
  Transmission Date: 20051028
  Serious: Yes (Disabling)
  Sender: FDA-Public Use
  Company Number: IT-BRISTOL-MYERS SQUIBB COMPANY-12958542

PATIENT
  Age: 34 Year
  Sex: Female

DRUGS (1)
  1. KENACORT [Suspect]
     Indication: RHINITIS ALLERGIC
     Route: 030
     Dates: start: 20040601, end: 20040601

REACTIONS (2)
  - NECROSIS [None]
  - SKIN ATROPHY [None]
